FAERS Safety Report 6747508-1 (Version None)
Quarter: 2010Q2

REPORT INFORMATION
  Report Type: 
  Country: None (occurrence: None)
  Receive Date: 20100528
  Receipt Date: 20100521
  Transmission Date: 20101027
  Serious: Yes (Other)
  Sender: FDA-Public Use
  Company Number: US-MERCK-1005USA03892

PATIENT
  Age: 36 Month
  Sex: Male

DRUGS (1)
  1. SINGULAIR [Suspect]
     Indication: ASTHMA
     Route: 048

REACTIONS (12)
  - ABNORMAL BEHAVIOUR [None]
  - AGGRESSION [None]
  - AGITATION [None]
  - AUTISM [None]
  - DEPRESSED MOOD [None]
  - FEAR [None]
  - IRRITABILITY [None]
  - MOOD SWINGS [None]
  - MUSCLE SPASTICITY [None]
  - NERVOUSNESS [None]
  - ONYCHOPHAGIA [None]
  - PHYSICAL ASSAULT [None]
